FAERS Safety Report 10386829 (Version 1)
Quarter: 2014Q1

REPORT INFORMATION
  Report Type: Spontaneous
  Country: US (occurrence: None)
  Receive Date: 20140306
  Receipt Date: 20140306
  Transmission Date: 20141002
  Serious: Yes (Life-Threatening, Hospitalization)
  Sender: FDA-Public Use
  Company Number: 163-21880-13061511

PATIENT
  Age: 82 Year
  Sex: Female

DRUGS (13)
  1. REVLIMID (LENALIDOMIDE) (25 MILLIGRAM, CAPSULES) [Suspect]
     Indication: PLASMA CELL MYELOMA
     Dosage: 21 IN 28D
     Dates: start: 20130409, end: 20130513
  2. OMEPRAZOLE (OMEPRAZOLE) [Concomitant]
  3. DECADRON (DEXAMETHASONE) [Concomitant]
  4. LEVOTHYROXINE (LEVOTHYROXINE) [Concomitant]
  5. METFORMIN (METFORMIN) [Concomitant]
  6. NIFEDICAL  (NIFEDIPINE) [Concomitant]
  7. GLUCOTROL (GLIPIZIDE) [Concomitant]
  8. LASIX (FUROSEMIDE) [Concomitant]
  9. ADVIL (IBUPROFEN) [Concomitant]
  10. CARVEDILOL (CARVEDILOL) [Concomitant]
  11. ZESTRIL (LISINOPRIL) [Concomitant]
  12. PROVENTIL (SALBUTAMOL) [Concomitant]
  13. FLOVENT (FUTICASONE PROPIONATE) [Concomitant]

REACTIONS (3)
  - Pulmonary embolism [None]
  - Thrombosis [None]
  - Hypersomnia [None]
